FAERS Safety Report 6185492-2 (Version None)
Quarter: 2009Q2

REPORT INFORMATION
  Report Type: 
  Country: None (occurrence: None)
  Receive Date: 20090511
  Receipt Date: 20090508
  Transmission Date: 20091009
  Serious: Yes (Death)
  Sender: FDA-Public Use
  Company Number: PHEH2009US01777

PATIENT
  Sex: Male

DRUGS (1)
  1. EXJADE [Suspect]
     Indication: IRON OVERLOAD
     Dosage: UNK, UNK

REACTIONS (2)
  - CEREBRAL HAEMORRHAGE [None]
  - CONCOMITANT DISEASE PROGRESSION [None]
